FAERS Safety Report 25130201 (Version 1)
Quarter: 2025Q1

REPORT INFORMATION
  Report Type: Spontaneous
  Country: IT (occurrence: IT)
  Receive Date: 20250327
  Receipt Date: 20250327
  Transmission Date: 20250409
  Serious: Yes (Hospitalization)
  Sender: TAKEDA
  Company Number: None

PATIENT
  Age: 18 Year
  Sex: Female
  Weight: 48 kg

DRUGS (2)
  1. ENTYVIO [Suspect]
     Active Substance: VEDOLIZUMAB
     Indication: Colitis ulcerative
     Dates: start: 20240306, end: 20240419
  2. MESALAMINE [Concomitant]
     Active Substance: MESALAMINE
     Indication: Colitis ulcerative
     Dosage: UNK UNK, BID
     Dates: end: 202306

REACTIONS (1)
  - Eosinophilia [Recovered/Resolved]

NARRATIVE: CASE EVENT DATE: 20240524
